FAERS Safety Report 26087187 (Version 1)
Quarter: 2025Q4

REPORT INFORMATION
  Report Type: Other
  Country: GB (occurrence: GB)
  Receive Date: 20251125
  Receipt Date: 20251125
  Transmission Date: 20260118
  Serious: Yes (Hospitalization)
  Sender: MACLEODS
  Company Number: None

PATIENT

DRUGS (29)
  1. TAMSULOSIN [Suspect]
     Active Substance: TAMSULOSIN
     Indication: Bladder dysfunction
     Route: 065
  2. PHENOBARBITAL SODIUM [Concomitant]
     Active Substance: PHENOBARBITAL SODIUM
     Indication: Product used for unknown indication
     Route: 065
  3. FUROSEMIDE [Concomitant]
     Active Substance: FUROSEMIDE
     Indication: Product used for unknown indication
     Route: 065
  4. PAMIDRONATE DISODIUM [Concomitant]
     Active Substance: PAMIDRONATE DISODIUM
     Indication: Product used for unknown indication
     Route: 065
  5. Clinitas Carbomer [Concomitant]
     Indication: Dry eye
     Dosage: BOTH EYES WHEN REQUIRED
     Route: 065
  6. SOLIFENACIN\TAMSULOSIN [Concomitant]
     Active Substance: SOLIFENACIN\TAMSULOSIN
     Indication: Product used for unknown indication
     Route: 065
  7. PHENYTOIN SODIUM [Concomitant]
     Active Substance: PHENYTOIN SODIUM
     Indication: Product used for unknown indication
     Route: 065
  8. OXYCODONE [Concomitant]
     Active Substance: OXYCODONE
     Indication: Pain
     Dosage: OXYCODONE 10 MG / 1 ML SOLUTION FOR INJECTION AMPOULES
     Route: 058
  9. LEVOMEPROMAZINE [Concomitant]
     Active Substance: LEVOMEPROMAZINE
     Indication: Product used for unknown indication
     Dosage: 6.25-25 MG OVER 24 HOURS
     Route: 065
  10. ETIDRONATE DISODIUM [Concomitant]
     Active Substance: ETIDRONATE DISODIUM
     Indication: Product used for unknown indication
     Route: 065
  11. AMILORIDE\FUROSEMIDE [Concomitant]
     Active Substance: AMILORIDE\FUROSEMIDE
     Indication: Product used for unknown indication
     Route: 065
  12. Evacal-D3 [Concomitant]
     Indication: Product used for unknown indication
     Dosage: EVACAL-D3 1500 MG / 400 UNIT CHEWABLE TABLETS
     Route: 065
  13. TRELEGY ELLIPTA [Concomitant]
     Active Substance: FLUTICASONE FUROATE\UMECLIDINIUM BROMIDE\VILANTEROL TRIFENATATE
     Indication: Product used for unknown indication
     Dosage: 92 / 55 / 22 MICROGRAMS / DOSE DRY POWDER INHALER
     Route: 065
  14. SCOPOLAMINE HYDROBROMIDE [Concomitant]
     Active Substance: SCOPOLAMINE HYDROBROMIDE
     Indication: Product used for unknown indication
     Dosage: 400 MICROGRAMS / 1 ML SOLUTION FOR INJECTION AMPOULES
     Route: 065
  15. SENNA [Concomitant]
     Active Substance: SENNOSIDES
     Indication: Product used for unknown indication
     Route: 065
  16. Midazolam 10 mg / 2 ml solution for injection ampoules [Concomitant]
     Indication: Product used for unknown indication
     Dosage: 10 MG / 2 ML SOLUTION FOR  INJECTION AMPOULES 10-30 MG OVER 24 HOURS
     Route: 065
  17. GADOFOSVESET TRISODIUM [Concomitant]
     Active Substance: GADOFOSVESET TRISODIUM
     Indication: Product used for unknown indication
     Route: 065
  18. DICLOFENAC SODIUM [Concomitant]
     Active Substance: DICLOFENAC SODIUM
     Indication: Product used for unknown indication
     Route: 065
  19. ALFENTANIL [Concomitant]
     Active Substance: ALFENTANIL
     Indication: Product used for unknown indication
     Dosage: 1 MG / 2 ML SOLUTION
     Route: 065
  20. ALFENTANIL [Concomitant]
     Active Substance: ALFENTANIL
     Dosage: AMPOULES 1 MG OVER 24 HOURS
     Route: 065
  21. Cetraben [Concomitant]
     Dosage: APPLY TWICE A DAY TO LEGS AND  FEET-CLINITAS CARBOMER 0.2%
     Route: 065
  22. FUROSEMIDE [Concomitant]
     Active Substance: FUROSEMIDE
     Indication: Product used for unknown indication
     Route: 065
  23. SODIUM CHLORIDE [Concomitant]
     Active Substance: SODIUM CHLORIDE
     Indication: Product used for unknown indication
     Dosage: 0.9% SOLUTION FOR  INJECTION
     Route: 065
  24. Triamterene + Furosemide [Concomitant]
     Indication: Product used for unknown indication
     Route: 065
  25. RISEDRONATE SODIUM [Concomitant]
     Active Substance: RISEDRONATE SODIUM
     Indication: Product used for unknown indication
     Route: 065
  26. OMEPRAZOLE [Concomitant]
     Active Substance: OMEPRAZOLE
     Indication: Product used for unknown indication
     Route: 065
  27. DERMOL [Concomitant]
     Active Substance: BENZALKONIUM CHLORIDE\CHLORHEXIDINE HYDROCHLORIDE\ISOPROPYL MYRISTATE\PARAFFIN
     Indication: Product used for unknown indication
     Dosage: DERMOL 500 LOTION
     Route: 065
  28. FUROSEMIDE\SPIRONOLACTONE [Concomitant]
     Active Substance: FUROSEMIDE\SPIRONOLACTONE
     Indication: Product used for unknown indication
     Route: 065
  29. PENTOSAN POLYSULFATE SODIUM [Concomitant]
     Active Substance: PENTOSAN POLYSULFATE SODIUM
     Indication: Product used for unknown indication
     Route: 065

REACTIONS (2)
  - Fall [Recovered/Resolved]
  - Dizziness [Unknown]
